FAERS Safety Report 19620992 (Version 1)
Quarter: 2021Q3

REPORT INFORMATION
  Report Type: Spontaneous
  Country: JP (occurrence: JP)
  Receive Date: 20210728
  Receipt Date: 20210728
  Transmission Date: 20211014
  Serious: Yes (Hospitalization)
  Sender: FDA-Public Use
  Company Number: JP-ASTELLAS-2021JP014018

PATIENT
  Age: 70 Year
  Sex: Male

DRUGS (3)
  1. XTANDI [Suspect]
     Active Substance: ENZALUTAMIDE
     Dosage: 120 MG, AT BED TIME
     Route: 048
  2. GONAX [Suspect]
     Active Substance: DEGARELIX
     Indication: PRODUCT USED FOR UNKNOWN INDICATION
     Dosage: UNK UNK, UNKNOWN FREQ.
     Route: 058
     Dates: start: 20210617
  3. XTANDI [Suspect]
     Active Substance: ENZALUTAMIDE
     Indication: PRODUCT USED FOR UNKNOWN INDICATION
     Dosage: 160 MG, AT BED TIME
     Route: 048
     Dates: start: 20210422

REACTIONS (12)
  - Blood pressure increased [Unknown]
  - Pyrexia [Recovering/Resolving]
  - Cough [Unknown]
  - Pyrexia [Unknown]
  - Malaise [Recovering/Resolving]
  - Pain [Unknown]
  - Swelling [Unknown]
  - Erythema [Unknown]
  - Product administered at inappropriate site [Unknown]
  - Cognitive disorder [Unknown]
  - Dizziness [Recovering/Resolving]
  - Bronchitis chronic [Unknown]

NARRATIVE: CASE EVENT DATE: 20210427
